FAERS Safety Report 18043876 (Version 1)
Quarter: 2020Q3

REPORT INFORMATION
  Report Type: Report from Study
  Country: IN (occurrence: IN)
  Receive Date: 20200720
  Receipt Date: 20200720
  Transmission Date: 20201103
  Serious: Yes (Other)
  Sender: FDA-Public Use
  Company Number: IN-GUERBET-IN-20200001

PATIENT
  Age: 36 Year
  Sex: Male

DRUGS (2)
  1. LIPIODOL [Suspect]
     Active Substance: ETHIODIZED OIL
     Indication: THERAPEUTIC EMBOLISATION
     Dosage: 1:1 MIXTURE OF 1 ML N?BUTYLCYANOACRYLATE (NECTARYL) AND IODOPHENDYLATE OIL (LIPIODOL)
     Route: 065
  2. NECTARYL [ENBUCRILATE] [Suspect]
     Active Substance: ENBUCRILATE
     Indication: THERAPEUTIC EMBOLISATION
     Dosage: 1:1 MIXTURE OF 1 ML N?BUTYLCYANOACRYLATE (NECTARYL) AND IODOPHENDYLATE OIL (LIPIODOL)
     Route: 065

REACTIONS (1)
  - Pneumothorax [Recovered/Resolved]
